FAERS Safety Report 6301526-6 (Version None)
Quarter: 2009Q3

REPORT INFORMATION
  Report Type: 
  Country: None (occurrence: None)
  Receive Date: 20090807
  Receipt Date: 20090727
  Transmission Date: 20100115
  Serious: Yes (Other)
  Sender: FDA-Public Use
  Company Number: B0587752A

PATIENT
  Sex: Female

DRUGS (2)
  1. CLENIL MODULITE [Suspect]
     Indication: ASTHMA
     Route: 055
  2. INHALER [Concomitant]
     Indication: ASTHMA
     Route: 055

REACTIONS (7)
  - APHONIA [None]
  - CEREBRAL PALSY [None]
  - CHOKING [None]
  - COUGH [None]
  - DRY THROAT [None]
  - DYSPHONIA [None]
  - RETCHING [None]
